FAERS Safety Report 5731207-9 (Version None)
Quarter: 2008Q2

REPORT INFORMATION
  Report Type: 
  Country: None (occurrence: None)
  Receive Date: 20080507
  Receipt Date: 20080429
  Transmission Date: 20081010
  Serious: Yes (Hospitalization)
  Sender: FDA-Public Use
  Company Number: NL-BOEHRINGER INGELHEIM GMBH, GERMANY-2008-NL-00211NL

PATIENT
  Sex: Male
  Weight: 78 kg

DRUGS (5)
  1. MOVICOX 15 MG TABLETS [Suspect]
     Indication: PAIN
     Dates: start: 20080222
  2. PARACETAMOL CODEINEFOSFAAT [Concomitant]
     Dosage: STRENGTH: 500/20MG 3DD1
     Dates: start: 20080227
  3. SORBITOLUM 70 PER CENTUM CRISTALLISABILE [Concomitant]
  4. DURAGESIC-100 [Concomitant]
  5. SINEMET [Concomitant]

REACTIONS (4)
  - HAEMATURIA [None]
  - HAEMOPTYSIS [None]
  - MEDICATION ERROR [None]
  - THROMBOCYTOPENIA [None]
